FAERS Safety Report 24567001 (Version 1)
Quarter: 2024Q4

REPORT INFORMATION
  Report Type: Spontaneous
  Country: FR (occurrence: FR)
  Receive Date: 20241030
  Receipt Date: 20241030
  Transmission Date: 20250114
  Serious: Yes (Other)
  Sender: ABBVIE
  Company Number: FR-PFIZER INC-PV202400138064

PATIENT
  Age: 61 Year

DRUGS (1)
  1. AZTREONAM [Suspect]
     Active Substance: AZTREONAM
     Indication: Abdominal infection
     Dosage: UNK
     Route: 065

REACTIONS (1)
  - Sepsis [Unknown]
